FAERS Safety Report 8459616-8 (Version None)
Quarter: 2012Q2

REPORT INFORMATION
  Report Type: 
  Country: None (occurrence: None)
  Receive Date: 20120622
  Receipt Date: 20120614
  Transmission Date: 20120825
  Serious: Yes (Other)
  Sender: FDA-Public Use
  Company Number: US-GLAXOSMITHKLINE-A0981307A

PATIENT
  Age: 46 Year
  Sex: Female

DRUGS (6)
  1. MELATONIN [Concomitant]
  2. VALTREX [Suspect]
     Indication: GENITAL HERPES
     Dosage: 500MG PER DAY
     Route: 048
     Dates: start: 20070301
  3. FLONASE [Concomitant]
  4. PATANASE [Concomitant]
  5. UNSPECIFIED MEDICATION [Concomitant]
     Dosage: 500MG PER DAY
  6. FEMARA [Concomitant]

REACTIONS (5)
  - LIVER FUNCTION TEST ABNORMAL [None]
  - KIDNEY INFECTION [None]
  - GENITAL HERPES [None]
  - SKIN HAEMORRHAGE [None]
  - ANAL FISSURE [None]
